FAERS Safety Report 9846658 (Version 1)
Quarter: 2013Q4

REPORT INFORMATION
  Report Type: Spontaneous
  Country: US (occurrence: None)
  Receive Date: 20131224
  Receipt Date: 20131224
  Transmission Date: 20140711
  Serious: Yes (Other)
  Sender: FDA-Public Use
  Company Number: PHEH2013US019750

PATIENT
  Age: 46 Year
  Sex: Female
  Weight: 70.8 kg

DRUGS (9)
  1. GILENYA (FINGOLIMOD) CAPSULE, 0.5MG [Suspect]
     Indication: RELAPSING-REMITTING MULTIPLE SCLEROSIS
     Route: 048
     Dates: start: 20120308, end: 20130828
  2. AMITRIPTYLINE [Concomitant]
  3. BUTORPHANOL TARTRATE [Concomitant]
  4. FLONASE [Concomitant]
  5. LIDODERM [Concomitant]
  6. LYRICA [Concomitant]
  7. MIRALAX [Concomitant]
  8. ZANTAC [Concomitant]
  9. MEDROL [Concomitant]

REACTIONS (5)
  - Macular oedema [None]
  - Multiple sclerosis relapse [None]
  - Visual acuity reduced [None]
  - Eye pain [None]
  - Vision blurred [None]
